FAERS Safety Report 9926194 (Version 2)
Quarter: 2014Q2

REPORT INFORMATION
  Report Type: Report from Study
  Country: CZ (occurrence: CZ)
  Receive Date: 20140226
  Receipt Date: 20140408
  Transmission Date: 20141212
  Serious: Yes (Hospitalization)
  Sender: FDA-Public Use
  Company Number: CZ-TEVA-464377USA

PATIENT
  Age: 72 Year
  Sex: Female

DRUGS (13)
  1. TREANDA [Suspect]
     Indication: NON-HODGKIN^S LYMPHOMA
     Dosage: CYCLIC, EVERY 28 DAYS
     Route: 042
     Dates: start: 20130509
  2. TREANDA [Suspect]
     Dosage: 245 UNITS
     Route: 042
     Dates: start: 20130927
  3. BETAXA [Concomitant]
     Indication: HYPERTENSION
     Route: 065
  4. RHEFLUIN [Concomitant]
     Indication: HYPERTENSION
     Route: 065
     Dates: start: 20131114
  5. MILURIT [Concomitant]
     Route: 065
     Dates: start: 20130801
  6. KALNORMIN [Concomitant]
     Route: 065
     Dates: start: 20130801, end: 20140129
  7. GABAPENTIN [Concomitant]
     Indication: HERPES ZOSTER
     Route: 065
     Dates: start: 20131114
  8. TRAMAL [Concomitant]
     Indication: POST HERPETIC NEURALGIA
     Route: 065
     Dates: start: 20131114
  9. HERPESIN                           /00587301/ [Concomitant]
     Indication: HERPES ZOSTER
     Route: 065
     Dates: start: 20131211
  10. PRESTARIUM NEO [Concomitant]
     Indication: HYPERTENSION
     Route: 065
     Dates: start: 20140129
  11. LOMIR SRO [Concomitant]
     Indication: HYPERTENSION
     Route: 065
     Dates: start: 20131114
  12. CAZAPROL [Concomitant]
     Indication: HYPERTENSION
     Route: 065
     Dates: start: 20131114
  13. GLUCOPHAGE [Concomitant]
     Indication: DIABETES MELLITUS
     Route: 065
     Dates: start: 20131114

REACTIONS (1)
  - Necrotising retinitis [Not Recovered/Not Resolved]
